FAERS Safety Report 9118480 (Version 4)
Quarter: 2015Q1

REPORT INFORMATION
  Report Type: Spontaneous
  Country: US (occurrence: US)
  Receive Date: 20130219
  Receipt Date: 20140213
  Transmission Date: 20150721
  Serious: No
  Sender: FDA-Public Use
  Company Number: US-BRISTOL-MYERS SQUIBB COMPANY-17164823

PATIENT
  Age: 72 Year
  Sex: Female

DRUGS (1)
  1. ORENCIA [Suspect]
     Active Substance: ABATACEPT
     Indication: RHEUMATOID ARTHRITIS
     Dosage: INJ POWDER,NO OF INF: 3,LAST INF: 21NOV12,05DEC12,23JAN13,13FEB13
     Route: 042
     Dates: start: 2012

REACTIONS (12)
  - Influenza [Unknown]
  - Headache [Unknown]
  - Glossodynia [Unknown]
  - Bronchitis [Unknown]
  - Nasopharyngitis [Unknown]
  - Diarrhoea [Unknown]
  - Paraesthesia oral [Unknown]
  - Therapeutic response decreased [Unknown]
  - Neoplasm [Unknown]
  - Chest pain [Unknown]
  - Fatigue [Unknown]
  - Back pain [Unknown]
